FAERS Safety Report 7682364-9 (Version None)
Quarter: 2011Q3

REPORT INFORMATION
  Report Type: 
  Country: None (occurrence: None)
  Receive Date: 20110815
  Receipt Date: 20110809
  Transmission Date: 20111222
  Serious: Yes (Hospitalization)
  Sender: FDA-Public Use
  Company Number: US-BRISTOL-MYERS SQUIBB COMPANY-15958267

PATIENT
  Age: 48 Year
  Sex: Female

DRUGS (3)
  1. CETUXIMAB [Suspect]
     Indication: NEOPLASM
     Dosage: 500MG WEEKLY NO OF COURSES: 02
     Route: 042
     Dates: start: 20110628
  2. BMS754807 [Suspect]
     Indication: NEOPLASM
     Dosage: NO OF COURSES: 2
     Route: 048
     Dates: start: 20110624
  3. NORCO [Concomitant]
     Dates: start: 20110610

REACTIONS (1)
  - GASTROINTESTINAL OBSTRUCTION [None]
